FAERS Safety Report 9063502 (Version 1)
Quarter: 2013Q1

REPORT INFORMATION
  Report Type: Report from Study
  Country: US (occurrence: US)
  Receive Date: 20130131
  Receipt Date: 20130131
  Transmission Date: 20140127
  Serious: No
  Sender: FDA-Public Use
  Company Number: US-ABBOTT-12P-163-1013414-00

PATIENT
  Age: 39 Year
  Sex: Female

DRUGS (1)
  1. HUMIRA [Suspect]
     Indication: PSORIATIC ARTHROPATHY

REACTIONS (5)
  - Device malfunction [Not Recovered/Not Resolved]
  - Arthritis [Unknown]
  - Incorrect dose administered [Unknown]
  - Incorrect storage of drug [Unknown]
  - Drug ineffective [Unknown]
